FAERS Safety Report 24031829 (Version 2)
Quarter: 2024Q3

REPORT INFORMATION
  Report Type: Spontaneous
  Country: US (occurrence: US)
  Receive Date: 20240629
  Receipt Date: 20240712
  Transmission Date: 20241016
  Serious: Yes (Death, Life-Threatening, Other)
  Sender: AUROBINDO
  Company Number: US-MLMSERVICE-20240613-PI097336-00317-1

PATIENT
  Age: 74 Year
  Sex: Female

DRUGS (1)
  1. TOBRAMYCIN [Suspect]
     Active Substance: TOBRAMYCIN\TOBRAMYCIN SULFATE
     Indication: Pneumonia pseudomonal
     Dosage: UNK

REACTIONS (1)
  - Renal failure [Fatal]
